FAERS Safety Report 4399909-7 (Version None)
Quarter: 2004Q3

REPORT INFORMATION
  Report Type: 
  Country: None (occurrence: None)
  Receive Date: 20040716
  Receipt Date: 20040701
  Transmission Date: 20050211
  Serious: Yes (Hospitalization)
  Sender: FDA-Public Use
  Company Number: 04P-076-0266001-00

PATIENT
  Age: 62 Year
  Sex: Female
  Weight: 62 kg

DRUGS (2)
  1. TARKA [Suspect]
     Indication: HYPERTENSION
     Dosage: 1 IN 1 D, PER ORAL
     Route: 048
     Dates: start: 20040325, end: 20040401
  2. LEVOTHYROXINE SODIUM [Concomitant]

REACTIONS (4)
  - CIRCULATORY COLLAPSE [None]
  - HYPOTENSION [None]
  - SINUS BRADYCARDIA [None]
  - VENTRICULAR HYPERTROPHY [None]
